FAERS Safety Report 11172224 (Version 1)
Quarter: 2015Q2

REPORT INFORMATION
  Report Type: Spontaneous
  Country: DE (occurrence: DE)
  Receive Date: 20150608
  Receipt Date: 20150608
  Transmission Date: 20150821
  Serious: Yes (Other)
  Sender: FDA-Public Use
  Company Number: DE-INCYTE CORPORATION-2015IN002529

PATIENT
  Sex: Male

DRUGS (2)
  1. JAKAFI [Suspect]
     Active Substance: RUXOLITINIB
     Dosage: UNK
     Route: 065
  2. JAKAFI [Suspect]
     Active Substance: RUXOLITINIB
     Indication: MYELOFIBROSIS
     Dosage: 10 MG, (2X10 MG) BID
     Route: 065

REACTIONS (5)
  - Impaired healing [Unknown]
  - Infection [Unknown]
  - Thrombocytopenia [Unknown]
  - Wound [Unknown]
  - Accident [Unknown]

NARRATIVE: CASE EVENT DATE: 2014
